FAERS Safety Report 15837076 (Version 2)
Quarter: 2019Q1

REPORT INFORMATION
  Report Type: Spontaneous
  Country: US (occurrence: US)
  Receive Date: 20190117
  Receipt Date: 20190205
  Transmission Date: 20190417
  Serious: No
  Sender: FDA-Public Use
  Company Number: US-AMGEN-USASP2019005609

PATIENT
  Sex: Male

DRUGS (2)
  1. PARSABIV [Suspect]
     Active Substance: ETELCALCETIDE HYDROCHLORIDE
     Indication: END STAGE RENAL DISEASE
     Dosage: 5 MG, UNK
     Route: 065
     Dates: end: 20190109
  2. SENSIPAR [Suspect]
     Active Substance: CINACALCET HYDROCHLORIDE
     Indication: END STAGE RENAL DISEASE
     Dosage: UNK
     Route: 065

REACTIONS (2)
  - Blood calcium decreased [Unknown]
  - Intercepted medication error [Unknown]

NARRATIVE: CASE EVENT DATE: 201812
